FAERS Safety Report 23944822 (Version 3)
Quarter: 2024Q3

REPORT INFORMATION
  Report Type: Spontaneous
  Country: JP (occurrence: JP)
  Receive Date: 20240606
  Receipt Date: 20240927
  Transmission Date: 20241017
  Serious: Yes (Life-Threatening, Hospitalization, Other)
  Sender: GLAXOSMITHKLINE
  Company Number: JP-TAKEDA-2024TJP008272

PATIENT

DRUGS (11)
  1. ZEJULA [Suspect]
     Active Substance: NIRAPARIB
     Indication: Ovarian cancer
     Dosage: 200 MG, QD
     Route: 048
     Dates: start: 20230727, end: 20240222
  2. TAXOL [Suspect]
     Active Substance: PACLITAXEL
     Indication: Product used for unknown indication
     Dosage: 175 MG/M2 (175 MILLIGRAM/SQ. METER)
     Route: 065
     Dates: start: 20220916, end: 20230119
  3. TAXOL [Suspect]
     Active Substance: PACLITAXEL
     Dosage: UNK
     Route: 065
     Dates: start: 20230416, end: 20230620
  4. CARBOPLATIN [Suspect]
     Active Substance: CARBOPLATIN
     Indication: Product used for unknown indication
     Dosage: 900 MG
     Route: 065
     Dates: start: 20220916, end: 20230119
  5. CARBOPLATIN [Suspect]
     Active Substance: CARBOPLATIN
     Dosage: UNK
     Route: 065
     Dates: start: 20230416, end: 20230620
  6. MAGNESIUM OXIDE [Concomitant]
     Active Substance: MAGNESIUM OXIDE
     Indication: Product used for unknown indication
     Dosage: 330 MG, TID
     Route: 048
     Dates: start: 20230727
  7. SENNOSIDES A AND B [Concomitant]
     Active Substance: SENNOSIDES A AND B
     Indication: Product used for unknown indication
     Dosage: 24 MG, QD
     Route: 048
     Dates: start: 20220905
  8. PRIMPERAN [Concomitant]
     Active Substance: METOCLOPRAMIDE HYDROCHLORIDE
     Indication: Nausea
     Dosage: 5 MG
     Route: 048
     Dates: start: 20220917
  9. LOXOPROFEN SODIUM [Concomitant]
     Active Substance: LOXOPROFEN SODIUM
     Indication: Pain
     Dosage: 60 MG
     Route: 048
     Dates: start: 20220901
  10. REBAMIPIDE [Concomitant]
     Active Substance: REBAMIPIDE
     Indication: Pain
     Dosage: 100 MG
     Route: 048
     Dates: start: 20221104
  11. CALONAL [Concomitant]
     Active Substance: ACETAMINOPHEN
     Indication: Pyrexia
     Dosage: 400 MG
     Route: 048

REACTIONS (3)
  - Myelodysplastic syndrome transformation [Not Recovered/Not Resolved]
  - Acute myeloid leukaemia [Not Recovered/Not Resolved]
  - Ovarian cancer recurrent [Unknown]

NARRATIVE: CASE EVENT DATE: 20231201
